FAERS Safety Report 23861470 (Version 2)
Quarter: 2024Q2

REPORT INFORMATION
  Report Type: Spontaneous
  Country: ES (occurrence: ES)
  Receive Date: 20240516
  Receipt Date: 20240603
  Transmission Date: 20240715
  Serious: Yes (Life-Threatening, Hospitalization)
  Sender: FDA-Public Use
  Company Number: None

PATIENT
  Age: 53 Year
  Sex: Female

DRUGS (6)
  1. CLOZAPINE [Suspect]
     Active Substance: CLOZAPINE
     Indication: Suicidal ideation
     Dates: start: 20240418
  2. ACETAMINOPHEN [Suspect]
     Active Substance: ACETAMINOPHEN
     Indication: Suicide attempt
     Dosage: 6 TABLETS
     Dates: start: 20240418
  3. AUGMENTIN [Suspect]
     Active Substance: AMOXICILLIN\CLAVULANATE POTASSIUM
     Indication: Suicide attempt
     Dosage: STRENGTH: 875MG/125MG, 30 TABLETS
     Dates: start: 20240418
  4. CLOTHIAPINE [Suspect]
     Active Substance: CLOTHIAPINE
     Indication: Suspected suicide attempt
     Dosage: STRENGTH: 40 MG, 30 TABLETS
     Dates: start: 20240418
  5. LORAZEPAM [Suspect]
     Active Substance: LORAZEPAM
     Indication: Suicide attempt
     Dosage: STRENGTH: 1 MG
     Dates: start: 20240418
  6. METAMIZOLE SODIUM [Suspect]
     Active Substance: METAMIZOLE SODIUM
     Indication: Suicide attempt
     Dosage: STRENGTH: 575 MG, 20 CAPSULES
     Dates: start: 20240418

REACTIONS (2)
  - Suicide attempt [Recovering/Resolving]
  - Depressed level of consciousness [Recovering/Resolving]

NARRATIVE: CASE EVENT DATE: 20240418
